FAERS Safety Report 25550989 (Version 1)
Quarter: 2025Q3

REPORT INFORMATION
  Report Type: Spontaneous
  Country: US (occurrence: US)
  Receive Date: 20250714
  Receipt Date: 20250714
  Transmission Date: 20251020
  Serious: No
  Sender: INTRA-CELLULAR THERAPIES
  Company Number: US-INTRA-CELLULAR THERAPIES, INC.-2025ICT00920

PATIENT
  Age: 54 Year
  Sex: Male

DRUGS (2)
  1. CAPLYTA [Suspect]
     Active Substance: LUMATEPERONE
     Indication: Bipolar disorder
     Dosage: 21 MG, 1X/DAY
     Route: 048
     Dates: start: 20250317, end: 20250521
  2. CAPLYTA [Suspect]
     Active Substance: LUMATEPERONE
     Indication: Mania

REACTIONS (6)
  - Withdrawal syndrome [Not Recovered/Not Resolved]
  - Middle insomnia [Unknown]
  - Irritability [Not Recovered/Not Resolved]
  - Hyperhidrosis [Unknown]
  - Hunger [Unknown]
  - Product dose omission issue [Unknown]

NARRATIVE: CASE EVENT DATE: 20250522
